FAERS Safety Report 7293003-3 (Version None)
Quarter: 2011Q1

REPORT INFORMATION
  Report Type: 
  Country: None (occurrence: None)
  Receive Date: 20110210
  Receipt Date: 20110210
  Transmission Date: 20110831
  Serious: Yes (Other)
  Sender: FDA-Public Use
  Company Number: None

PATIENT
  Age: 53 Year
  Sex: Female
  Weight: 55.3388 kg

DRUGS (1)
  1. CLINDAMYCIN HCL [Suspect]
     Indication: TOOTH INFECTION
     Dosage: 2 CAPSULES 1 PO 1 CAPSULE 6 HOURS PO
     Route: 048
     Dates: start: 20110207, end: 20110207

REACTIONS (4)
  - URTICARIA [None]
  - FACE OEDEMA [None]
  - DRUG INEFFECTIVE [None]
  - RASH [None]
